FAERS Safety Report 5142771-5 (Version None)
Quarter: 2006Q4

REPORT INFORMATION
  Report Type: 
  Country: None (occurrence: None)
  Receive Date: 20061027
  Receipt Date: 20061017
  Transmission Date: 20070319
  Serious: Yes (Other)
  Sender: FDA-Public Use
  Company Number: US200608006957

PATIENT
  Age: 47 Year
  Sex: Male

DRUGS (5)
  1. ZYPREXA ZYDIS [Suspect]
     Indication: BIPOLAR I DISORDER
     Dosage: SEE IMAGE
     Dates: end: 20060628
  2. ZYPREXA ZYDIS [Suspect]
     Indication: BIPOLAR I DISORDER
     Dosage: SEE IMAGE
     Dates: start: 20060607
  3. LOTREL [Concomitant]
  4. MARIJUANA            (CANNABIS) [Concomitant]
  5. CLARITIN [Concomitant]

REACTIONS (5)
  - CHRONIC OBSTRUCTIVE PULMONARY DISEASE [None]
  - LARYNGOSPASM [None]
  - PANIC DISORDER [None]
  - STRIDOR [None]
  - SUFFOCATION FEELING [None]
